FAERS Safety Report 22166931 (Version 1)
Quarter: 2023Q2

REPORT INFORMATION
  Report Type: Spontaneous
  Country: US (occurrence: US)
  Receive Date: 20230403
  Receipt Date: 20230403
  Transmission Date: 20230721
  Serious: Yes (Death)
  Sender: FDA-Public Use
  Company Number: US-OPKO PHARMACEUTICALS, LLC.-2023OPK00012

PATIENT
  Sex: Female

DRUGS (3)
  1. RAYALDEE [Suspect]
     Active Substance: CALCIFEDIOL
     Indication: Hyperparathyroidism secondary
     Dosage: UNK
  2. RAYALDEE [Suspect]
     Active Substance: CALCIFEDIOL
     Indication: Vitamin D deficiency
  3. RAYALDEE [Suspect]
     Active Substance: CALCIFEDIOL
     Indication: Chronic kidney disease

REACTIONS (1)
  - Death [Fatal]

NARRATIVE: CASE EVENT DATE: 20230101
